FAERS Safety Report 12233816 (Version 1)
Quarter: 2016Q2

REPORT INFORMATION
  Report Type: Spontaneous
  Country: GB (occurrence: GB)
  Receive Date: 20160404
  Receipt Date: 20160404
  Transmission Date: 20160815
  Serious: Yes (Other)
  Sender: FDA-Public Use
  Company Number: GB-AMGEN-GBRSP2016039961

PATIENT
  Age: 65 Year
  Sex: Female

DRUGS (1)
  1. ENBREL [Suspect]
     Active Substance: ETANERCEPT
     Indication: PRODUCT USED FOR UNKNOWN INDICATION
     Dosage: 25 MG, WEEKLY (ONCE WEEKLY)
     Route: 058

REACTIONS (5)
  - Weight decreased [Unknown]
  - Pain [Unknown]
  - Immune system disorder [Unknown]
  - Mycobacterium avium complex infection [Unknown]
  - Cough [Unknown]
